FAERS Safety Report 8585510-8 (Version None)
Quarter: 2012Q3

REPORT INFORMATION
  Report Type: 
  Country: None (occurrence: None)
  Receive Date: 20120810
  Receipt Date: 20120731
  Transmission Date: 20120928
  Serious: No
  Sender: FDA-Public Use
  Company Number: US-009507513-1208USA000565

PATIENT

DRUGS (2)
  1. ASMANEX TWISTHALER [Suspect]
     Dosage: 2 DF, QD
     Route: 055
  2. SINGULAIR [Concomitant]
     Route: 048

REACTIONS (2)
  - BLOOD GLUCOSE INCREASED [None]
  - VISUAL IMPAIRMENT [None]
